FAERS Safety Report 7479179-3 (Version None)
Quarter: 2011Q2

REPORT INFORMATION
  Report Type: 
  Country: None (occurrence: None)
  Receive Date: 20110513
  Receipt Date: 20110509
  Transmission Date: 20111010
  Serious: Yes (Hospitalization, Congenital Anomaly)
  Sender: FDA-Public Use
  Company Number: A0685068A

PATIENT
  Sex: Female
  Weight: 1.2 kg

DRUGS (2)
  1. PAXIL [Suspect]
     Indication: DEPRESSION
     Dosage: 20MG PER DAY
     Route: 064
     Dates: start: 20000701, end: 20031001
  2. PRENATAL VITAMINS [Concomitant]
     Route: 064
     Dates: start: 20000901, end: 20010401

REACTIONS (8)
  - GENITALIA EXTERNAL AMBIGUOUS [None]
  - DEAFNESS NEUROSENSORY [None]
  - DRUG EXPOSURE DURING PREGNANCY [None]
  - PATENT DUCTUS ARTERIOSUS [None]
  - VENTRICULAR SEPTAL DEFECT [None]
  - CARDIAC FAILURE CONGESTIVE [None]
  - PREMATURE BABY [None]
  - VESTIBULAR DISORDER [None]
